FAERS Safety Report 5203661-2 (Version None)
Quarter: 2007Q1

REPORT INFORMATION
  Report Type: 
  Country: None (occurrence: None)
  Receive Date: 20070110
  Receipt Date: 20070105
  Transmission Date: 20070707
  Serious: Yes (Death, Hospitalization, Other)
  Sender: FDA-Public Use
  Company Number: PHBS2006BR19882

PATIENT
  Age: 17 Year
  Sex: Female

DRUGS (5)
  1. GLEEVEC [Suspect]
     Indication: ACUTE MYELOID LEUKAEMIA
     Dosage: 100 MG, QID
     Route: 048
     Dates: start: 20050501
  2. METHOTREXATE [Concomitant]
     Indication: ACUTE MYELOID LEUKAEMIA
     Route: 042
  3. DECADRON [Concomitant]
     Indication: ACUTE MYELOID LEUKAEMIA
     Route: 042
  4. ARACYTIN [Concomitant]
     Indication: ACUTE MYELOID LEUKAEMIA
     Route: 042
  5. VORICONAZOLE [Concomitant]
     Indication: ASPERGILLOSIS
     Route: 042

REACTIONS (5)
  - ACUTE MYELOID LEUKAEMIA [None]
  - BONE MARROW FAILURE [None]
  - HYPERSENSITIVITY [None]
  - INFECTION [None]
  - WHITE BLOOD CELL COUNT DECREASED [None]
